FAERS Safety Report 5866697-4 (Version None)
Quarter: 2008Q3

REPORT INFORMATION
  Report Type: 
  Country: None (occurrence: None)
  Receive Date: 20080828
  Receipt Date: 20080828
  Transmission Date: 20090109
  Serious: Yes (Other)
  Sender: FDA-Public Use
  Company Number: None

PATIENT
  Age: 29 Year
  Sex: Female
  Weight: 58.0604 kg

DRUGS (1)
  1. CHANTIX [Suspect]
     Indication: SMOKING CESSATION THERAPY
     Dosage: 1 MG TWICE A DAY PO
     Route: 048
     Dates: start: 20080728, end: 20080826

REACTIONS (15)
  - ABNORMAL BEHAVIOUR [None]
  - ACTIVITIES OF DAILY LIVING IMPAIRED [None]
  - APATHY [None]
  - ARTHRALGIA [None]
  - BACK PAIN [None]
  - CRYING [None]
  - DEPRESSION [None]
  - HEADACHE [None]
  - MENTAL IMPAIRMENT [None]
  - MOOD SWINGS [None]
  - MYALGIA [None]
  - NAUSEA [None]
  - PERSONALITY CHANGE [None]
  - SLEEP DISORDER [None]
  - THINKING ABNORMAL [None]
